FAERS Safety Report 5618258-X (Version None)
Quarter: 2008Q1

REPORT INFORMATION
  Report Type: 
  Country: None (occurrence: None)
  Receive Date: 20080207
  Receipt Date: 20080128
  Transmission Date: 20080703
  Serious: Yes (Other)
  Sender: FDA-Public Use
  Company Number: US-ROCHE-543763

PATIENT
  Sex: Female

DRUGS (2)
  1. VALIUM [Suspect]
     Indication: DRUG USE FOR UNKNOWN INDICATION
     Dosage: THE PATIENT WAS TAKING VALIUM (A PILL) 5MG THREE TIMES A DAY, EVERY 8 HOURS.
     Route: 065
  2. SYNTHROID [Concomitant]
     Indication: HYPOTHYROIDISM

REACTIONS (1)
  - HYPOTHYROIDISM [None]
